FAERS Safety Report 12402225 (Version 2)
Quarter: 2016Q2

REPORT INFORMATION
  Report Type: Spontaneous
  Country: US (occurrence: US)
  Receive Date: 20160525
  Receipt Date: 20160527
  Transmission Date: 20160815
  Serious: No
  Sender: FDA-Public Use
  Company Number: US-SA-2016SA015564

PATIENT
  Age: 69 Year
  Sex: Female

DRUGS (3)
  1. RELION NOVOLIN R [Concomitant]
     Dosage: AT EACH MEAL AND AS NEEDED
  2. LANTUS [Suspect]
     Active Substance: INSULIN GLARGINE
     Indication: TYPE 2 DIABETES MELLITUS
     Dosage: DOSE:40 UNIT(S)
     Route: 065
  3. LANTUS [Suspect]
     Active Substance: INSULIN GLARGINE
     Indication: TYPE 2 DIABETES MELLITUS
     Dosage: FREQUENCY- AT EACH MEAL DOSE:40 UNIT(S)
     Route: 065
     Dates: start: 2013

REACTIONS (3)
  - Pancreatic steatosis [Unknown]
  - Hepatic function abnormal [Unknown]
  - Drug dose omission [Unknown]
